FAERS Safety Report 8385941-5 (Version None)
Quarter: 2012Q2

REPORT INFORMATION
  Report Type: 
  Country: None (occurrence: None)
  Receive Date: 20120525
  Receipt Date: 20120514
  Transmission Date: 20120825
  Serious: Yes (Other)
  Sender: FDA-Public Use
  Company Number: BR-JNJFOC-20120514413

PATIENT
  Age: 5 Year
  Sex: Female

DRUGS (1)
  1. REMICADE [Suspect]
     Indication: PROCTOCOLITIS
     Route: 042

REACTIONS (3)
  - VARICELLA [None]
  - SEBORRHOEIC DERMATITIS [None]
  - URTICARIA [None]
